FAERS Safety Report 15114847 (Version 1)
Quarter: 2018Q3

REPORT INFORMATION
  Report Type: Report from Study
  Country: None (occurrence: US)
  Receive Date: 20180706
  Receipt Date: 20180706
  Transmission Date: 20181010
  Serious: Yes (Other)
  Sender: FDA-Public Use
  Company Number: US-ABBVIE-18K-163-2217141-00

PATIENT
  Age: 53 Year
  Sex: Female

DRUGS (2)
  1. HUMIRA [Suspect]
     Active Substance: ADALIMUMAB
     Route: 058
     Dates: start: 201711
  2. HUMIRA [Suspect]
     Active Substance: ADALIMUMAB
     Indication: PSORIASIS
     Route: 058
     Dates: end: 2016

REACTIONS (14)
  - Inflammation [Unknown]
  - Drug effect decreased [Unknown]
  - Lymphadenopathy [Unknown]
  - Psoriasis [Not Recovered/Not Resolved]
  - Infection [Unknown]
  - Dry skin [Unknown]
  - Malaise [Unknown]
  - Dizziness [Unknown]
  - Neck mass [Unknown]
  - Nasopharyngitis [Unknown]
  - Pruritus [Unknown]
  - Myopia [Unknown]
  - Nausea [Unknown]
  - Rash macular [Unknown]

NARRATIVE: CASE EVENT DATE: 2016
